FAERS Safety Report 5186300-9 (Version None)
Quarter: 2006Q4

REPORT INFORMATION
  Report Type: 
  Country: None (occurrence: None)
  Receive Date: 20061213
  Receipt Date: 20061208
  Transmission Date: 20070319
  Serious: Yes (Life-Threatening, Other)
  Sender: FDA-Public Use
  Company Number: HQWYE766211DEC06

PATIENT
  Sex: Female

DRUGS (1)
  1. TYGACIL [Suspect]
     Indication: ABDOMINAL INFECTION
     Dosage: 100 MG 1X PER 1 TOT, INTRAVENOUS
     Route: 042
     Dates: start: 20061208, end: 20061208

REACTIONS (2)
  - ACUTE PULMONARY OEDEMA [None]
  - BRONCHOSPASM [None]
